FAERS Safety Report 10045388 (Version 2)
Quarter: 2014Q2

REPORT INFORMATION
  Report Type: Spontaneous
  Country: US (occurrence: US)
  Receive Date: 20140328
  Receipt Date: 20140408
  Transmission Date: 20141212
  Serious: Yes (Death, Hospitalization)
  Sender: FDA-Public Use
  Company Number: US-AMGEN-USASP2014021021

PATIENT
  Age: 70 Year
  Sex: Female

DRUGS (14)
  1. PROLIA [Suspect]
     Indication: OSTEOPOROSIS POSTMENOPAUSAL
     Dosage: 60 MG/ML, Q6MO
     Route: 065
     Dates: start: 20130909
  2. AMBIEN [Concomitant]
  3. ASPIRIN [Concomitant]
  4. CALCIUM CARBONATE [Concomitant]
  5. FISH OIL [Concomitant]
  6. GLUCOSAMINE HYDROCHLORIDE [Concomitant]
  7. LISINOPRIL [Concomitant]
  8. MELOXICAM [Concomitant]
  9. MULTIVITAMIN                       /00097801/ [Concomitant]
  10. PREMARIN [Concomitant]
  11. PRILOSEC                           /00661201/ [Concomitant]
  12. TRAZODONE [Concomitant]
  13. VITAMIN B3 [Concomitant]
  14. VALTREX [Concomitant]

REACTIONS (2)
  - Death [Fatal]
  - Haemorrhage intracranial [Unknown]
